FAERS Safety Report 26192773 (Version 1)
Quarter: 2025Q4

REPORT INFORMATION
  Report Type: Spontaneous
  Country: EU (occurrence: EU)
  Receive Date: 20251223
  Receipt Date: 20251223
  Transmission Date: 20260118
  Serious: Yes (Disabling, Other)
  Sender: MYLAN
  Company Number: EU-ETHYPHARM-2025003999

PATIENT
  Sex: Female

DRUGS (16)
  1. LEVETIRACETAM [Suspect]
     Active Substance: LEVETIRACETAM
     Indication: Hyperglycinaemia
     Dosage: UNK
  2. LEVETIRACETAM [Suspect]
     Active Substance: LEVETIRACETAM
     Indication: Seizure
     Dosage: UNK
     Route: 065
  3. LEVETIRACETAM [Suspect]
     Active Substance: LEVETIRACETAM
     Dosage: UNK
     Route: 065
  4. LEVETIRACETAM [Suspect]
     Active Substance: LEVETIRACETAM
     Dosage: UNK
  5. SODIUM BENZOATE [Concomitant]
     Active Substance: SODIUM BENZOATE
     Indication: Hyperglycinaemia
     Dosage: UNK
  6. SODIUM BENZOATE [Concomitant]
     Active Substance: SODIUM BENZOATE
     Dosage: UNK
     Route: 065
  7. SODIUM BENZOATE [Concomitant]
     Active Substance: SODIUM BENZOATE
     Dosage: UNK
     Route: 065
  8. SODIUM BENZOATE [Concomitant]
     Active Substance: SODIUM BENZOATE
     Dosage: UNK
  9. ZONISAMIDE [Concomitant]
     Active Substance: ZONISAMIDE
     Indication: Hyperglycinaemia
     Dosage: UNK
  10. ZONISAMIDE [Concomitant]
     Active Substance: ZONISAMIDE
     Dosage: UNK
     Route: 065
  11. ZONISAMIDE [Concomitant]
     Active Substance: ZONISAMIDE
     Dosage: UNK
     Route: 065
  12. ZONISAMIDE [Concomitant]
     Active Substance: ZONISAMIDE
     Dosage: UNK
  13. DEXTROMETHORPHAN [Concomitant]
     Active Substance: DEXTROMETHORPHAN
     Indication: Hyperglycinaemia
     Dosage: UNK
  14. DEXTROMETHORPHAN [Concomitant]
     Active Substance: DEXTROMETHORPHAN
     Dosage: UNK
     Route: 065
  15. DEXTROMETHORPHAN [Concomitant]
     Active Substance: DEXTROMETHORPHAN
     Dosage: UNK
     Route: 065
  16. DEXTROMETHORPHAN [Concomitant]
     Active Substance: DEXTROMETHORPHAN
     Dosage: UNK

REACTIONS (1)
  - Therapeutic product effect incomplete [Unknown]
